FAERS Safety Report 7438485-9 (Version None)
Quarter: 2011Q2

REPORT INFORMATION
  Report Type: 
  Country: None (occurrence: None)
  Receive Date: 20110426
  Receipt Date: 20110413
  Transmission Date: 20111010
  Serious: Yes (Other)
  Sender: FDA-Public Use
  Company Number: JP-PFIZER INC-2011088674

PATIENT
  Age: 70 Year
  Sex: Male

DRUGS (3)
  1. MIGLITOL [Suspect]
     Indication: DIABETES MELLITUS
     Dosage: 50 MG, 3X/DAY
     Dates: start: 20100701, end: 20110225
  2. DIOVAN [Concomitant]
     Indication: HYPERTENSION
     Dosage: 80 MG, DAILY
     Dates: start: 20100701, end: 20110225
  3. DIOVAN [Concomitant]
     Dosage: 80 MG, DAILY

REACTIONS (1)
  - HEPATITIS [None]
